FAERS Safety Report 9422740 (Version 1)
Quarter: 2013Q3

REPORT INFORMATION
  Report Type: Spontaneous
  Country: US (occurrence: US)
  Receive Date: 20130726
  Receipt Date: 20130726
  Transmission Date: 20140515
  Serious: Yes (Other)
  Sender: FDA-Public Use
  Company Number: US-MYLANLABS-2013S1011115

PATIENT
  Age: 35 Year
  Sex: Male
  Weight: 77.11 kg

DRUGS (4)
  1. TRAMADOL HYDROCHLORIDE TABLETS [Suspect]
     Indication: BACK PAIN
     Route: 048
     Dates: end: 201212
  2. CLONIDINE [Concomitant]
     Indication: BLOOD PRESSURE INCREASED
     Route: 048
  3. TRAZODONE [Concomitant]
     Indication: SLEEP DISORDER
     Route: 048
  4. NEURONTIN [Concomitant]
     Indication: NEUROPATHY PERIPHERAL
     Route: 048

REACTIONS (1)
  - Convulsion [Not Recovered/Not Resolved]
